FAERS Safety Report 7273892-9 (Version None)
Quarter: 2011Q1

REPORT INFORMATION
  Report Type: 
  Country: None (occurrence: None)
  Receive Date: 20110203
  Receipt Date: 20110131
  Transmission Date: 20110831
  Serious: Yes (Hospitalization, Other)
  Sender: FDA-Public Use
  Company Number: US-PFIZER INC-2009299899

PATIENT
  Sex: Female

DRUGS (16)
  1. ULTRAM [Concomitant]
     Dosage: 50 MG, 4X/DAY
     Route: 048
  2. CIPROFLOXACIN [Concomitant]
     Dosage: 500 MG, 2X/DAY
     Route: 048
  3. PREMARIN [Suspect]
     Indication: HORMONE REPLACEMENT THERAPY
     Dosage: UNK
  4. ACIPHEX [Concomitant]
     Dosage: 20 MG, 1X/DAY
     Route: 048
  5. ESTRADIOL [Suspect]
     Indication: HORMONE REPLACEMENT THERAPY
     Dosage: UNK
  6. ESTRATEST [Suspect]
     Indication: HORMONE REPLACEMENT THERAPY
     Dosage: UNK
  7. ZOLOFT [Concomitant]
     Dosage: 50 MG, 1X/DAY
     Route: 048
  8. PREMARIN [Suspect]
     Indication: VULVOVAGINAL DRYNESS
  9. ZITHROMAX [Concomitant]
     Dosage: 250 MG, AS DIRECTED
  10. DARVOCET-N 100 [Concomitant]
     Dosage: 100-650MG, AS DIRECTED
  11. IBUPROFEN [Concomitant]
     Dosage: 800 MG, UNK
  12. DESYREL [Concomitant]
     Dosage: 50 MG, AS DIRECTED
  13. BISOPROLOL FUMARATE AND HYDROCHLOROTHIAZIDE [Concomitant]
  14. BEXTRA [Concomitant]
     Dosage: 10 MG, 1X/DAY
     Route: 048
  15. PRILOSEC [Concomitant]
     Dosage: 20 MG, 1X/DAY
     Route: 048
  16. BACTRIM DS [Concomitant]
     Dosage: 800-160MG, TWICE DAILY
     Route: 048

REACTIONS (4)
  - HEART VALVE INCOMPETENCE [None]
  - AORTIC VALVE INCOMPETENCE [None]
  - BENIGN NEOPLASM OF THYROID GLAND [None]
  - HYPERTENSION [None]
